FAERS Safety Report 10053058 (Version 1)
Quarter: 2014Q1

REPORT INFORMATION
  Report Type: Spontaneous
  Country: GB (occurrence: None)
  Receive Date: 20140331
  Receipt Date: 20140331
  Transmission Date: 20141002
  Serious: Yes (Other)
  Sender: FDA-Public Use
  Company Number: AUR-APL-2014-03883

PATIENT
  Age: 45 Year
  Sex: Male

DRUGS (2)
  1. ALFUZOSIN [Suspect]
     Indication: URINARY TRACT OBSTRUCTION
     Dosage: 10MG (10MG, 1 IN 1 D) ORAL
     Route: 048
     Dates: start: 20140130, end: 20140228
  2. SALBUTAMOL [Suspect]
     Indication: PRODUCT USED FOR UNKNOWN INDICATION
     Route: 055

REACTIONS (4)
  - Chest pain [None]
  - Dyspnoea [None]
  - Palpitations [None]
  - Bradycardia [None]
